FAERS Safety Report 4401302-5 (Version None)
Quarter: 2004Q3

REPORT INFORMATION
  Report Type: 
  Country: None (occurrence: None)
  Receive Date: 20040907
  Receipt Date: 20040223
  Transmission Date: 20050211
  Serious: No
  Sender: FDA-Public Use
  Company Number: US-BRISTOL-MYERS SQUIBB COMPANY-12515045

PATIENT
  Age: 68 Year
  Sex: Female
  Weight: 54 kg

DRUGS (5)
  1. COUMADIN [Suspect]
     Indication: ATRIAL FIBRILLATION
     Dosage: ON VARYING DOSE; CURRENTLY 4MG QD X 3 DAYS + 5MG FOR 1 DAY, THEN BACK AGAIN.
     Route: 048
     Dates: start: 20020801
  2. ESTROGEN [Concomitant]
     Indication: HORMONE REPLACEMENT THERAPY
  3. CALCIUM [Concomitant]
  4. MAGNESIUM [Concomitant]
  5. MULTIVITAMIN [Concomitant]

REACTIONS (2)
  - INTERNATIONAL NORMALISED RATIO ABNORMAL [None]
  - NASOPHARYNGITIS [None]
